FAERS Safety Report 11432385 (Version 1)
Quarter: 2015Q3

REPORT INFORMATION
  Report Type: Spontaneous
  Country: SE (occurrence: SE)
  Receive Date: 20150828
  Receipt Date: 20150828
  Transmission Date: 20151125
  Serious: Yes (Hospitalization)
  Sender: FDA-Public Use
  Company Number: SE-ASTRAZENECA-2015SE80535

PATIENT
  Age: 75 Year
  Sex: Male

DRUGS (3)
  1. ALFADIL BPH [Concomitant]
     Active Substance: DOXAZOSIN MESYLATE
  2. BRILIQUE [Suspect]
     Active Substance: TICAGRELOR
     Indication: THROMBOSIS PROPHYLAXIS
     Route: 048
     Dates: start: 20150506, end: 20150803
  3. TROMBYL [Concomitant]
     Active Substance: ASPIRIN

REACTIONS (2)
  - Chest discomfort [Unknown]
  - Dyspnoea [Unknown]

NARRATIVE: CASE EVENT DATE: 201505
